FAERS Safety Report 5169072-3 (Version None)
Quarter: 2006Q4

REPORT INFORMATION
  Report Type: 
  Country: None (occurrence: None)
  Receive Date: 20061211
  Receipt Date: 20061201
  Transmission Date: 20070319
  Serious: Yes (Hospitalization)
  Sender: FDA-Public Use
  Company Number: US-JNJFOC-20061201179

PATIENT
  Sex: Female
  Weight: 90.72 kg

DRUGS (12)
  1. INFLIXIMAB [Suspect]
     Indication: RHEUMATOID ARTHRITIS
     Route: 042
  2. CELEBREX [Concomitant]
  3. PREDNISONE TAB [Concomitant]
  4. TREXALL [Concomitant]
  5. FOLIC ACID [Concomitant]
  6. CALCIUM [Concomitant]
  7. VITAMIN D [Concomitant]
  8. TRIAMTERENE AND HYDROCHLOROTHIAZIDE [Concomitant]
  9. ASPIRIN [Concomitant]
  10. CRESTOR [Concomitant]
  11. INDERAL [Concomitant]
  12. PREVACID [Concomitant]

REACTIONS (3)
  - COLONIC POLYP [None]
  - GASTRIC POLYPS [None]
  - HIATUS HERNIA [None]
